FAERS Safety Report 15433961 (Version 2)
Quarter: 2019Q3

REPORT INFORMATION
  Report Type: Report from Study
  Country: UG (occurrence: UG)
  Receive Date: 20180927
  Receipt Date: 20190913
  Transmission Date: 20191004
  Serious: Yes (Hospitalization, Congenital Anomaly, Other)
  Sender: FDA-Public Use
  Company Number: UG-VIIV HEALTHCARE LIMITED-UG2018GSK068542

PATIENT
  Age: 12 Day
  Sex: Male

DRUGS (23)
  1. AMPICILLIN [Concomitant]
     Active Substance: AMPICILLIN
     Dosage: 150 MG, UNK
     Route: 042
     Dates: start: 20180408, end: 20180410
  2. ORAL REHYDRATION SALT [Concomitant]
     Dosage: UNK
     Dates: start: 20181217, end: 201812
  3. CEFIXIME. [Concomitant]
     Active Substance: CEFIXIME
     Dosage: 100 MG, UNK
     Dates: start: 20190502, end: 20190508
  4. TETRACYCLINE EYE OINTMENT [Concomitant]
     Dosage: UNK
     Dates: start: 20190610, end: 20190615
  5. LAMIVUDINE + TENOFOVIR DISOPROXIL FUMARATE [Concomitant]
     Active Substance: LAMIVUDINE\TENOFOVIR DISOPROXIL FUMARATE
     Indication: HIV INFECTION
     Dosage: 300/300 MG, UNK
     Dates: start: 20180221
  6. COTRIMOXAZOLE [Concomitant]
     Active Substance: SULFAMETHOXAZOLE\TRIMETHOPRIM
     Dosage: 120 MG, UNK
     Dates: start: 20180517, end: 2018
  7. ORAL REHYDRATION SALT [Concomitant]
     Dosage: UNK
     Dates: start: 20190502, end: 201905
  8. ZINC SULFATE. [Concomitant]
     Active Substance: ZINC SULFATE
     Dosage: 20 MG, UNK
     Dates: start: 20181217, end: 201812
  9. ORAL REHYDRATION SALT [Concomitant]
     Dosage: UNK
     Dates: start: 20190318, end: 201903
  10. PARACETAMOL [Concomitant]
     Active Substance: ACETAMINOPHEN
     Dosage: 375 MG, UNK
     Dates: start: 20190502, end: 20190506
  11. ZINC SULFATE. [Concomitant]
     Active Substance: ZINC SULFATE
     Dosage: 20 MG, UNK
     Dates: start: 20190502, end: 20190512
  12. VITAMIN A [Concomitant]
     Active Substance: VITAMIN A
     Dosage: 100000 IU, UNK
     Dates: start: 20190318, end: 20190318
  13. DEXTROSE 10% [Concomitant]
     Active Substance: DEXTROSE
     Dosage: UNK
     Route: 042
     Dates: start: 20180408, end: 20180410
  14. COTRIMOXAZOLE [Concomitant]
     Active Substance: SULFAMETHOXAZOLE\TRIMETHOPRIM
     Dosage: 240 MG, UNK
     Dates: start: 2018, end: 20190825
  15. AZITHROMYCIN ANHYDROUS. [Concomitant]
     Active Substance: AZITHROMYCIN ANHYDROUS
     Dosage: 100 MG, UNK
     Dates: start: 20190610, end: 20190616
  16. ZINC SULFATE. [Concomitant]
     Active Substance: ZINC SULFATE
     Dosage: 20 MG, UNK
     Dates: start: 20190318, end: 20190327
  17. ORAL REHYDRATION SALT [Concomitant]
     Dosage: UNK
     Dates: start: 20190610, end: 201906
  18. DOLUTEGRAVIR [Suspect]
     Active Substance: DOLUTEGRAVIR
     Indication: HIV INFECTION
     Dosage: 50 MG, QD
     Route: 064
     Dates: start: 20180221
  19. NORMAL SALINE [Concomitant]
     Active Substance: SODIUM CHLORIDE
     Dosage: UNK
     Route: 042
     Dates: start: 20180408, end: 20180410
  20. ZINC SULFATE. [Concomitant]
     Active Substance: ZINC SULFATE
     Dosage: 20 MG, UNK
     Dates: start: 20190610, end: 20190619
  21. MEBENDAZOLE. [Concomitant]
     Active Substance: MEBENDAZOLE
     Dosage: 250 MG, UNK
     Dates: start: 20190318, end: 20190318
  22. GENTAMICIN. [Concomitant]
     Active Substance: GENTAMICIN
     Dosage: 9 MG, UNK
     Dates: start: 20180408, end: 20180410
  23. METRONIDAZOLE. [Concomitant]
     Active Substance: METRONIDAZOLE
     Dosage: 300 MG, UNK
     Dates: start: 20190610, end: 20190610

REACTIONS (3)
  - Umbilical hernia [Recovered/Resolved]
  - Birth mark [Not Recovered/Not Resolved]
  - Neonatal asphyxia [Recovered/Resolved]

NARRATIVE: CASE EVENT DATE: 20180408
